FAERS Safety Report 10057810 (Version 1)
Quarter: 2014Q2

REPORT INFORMATION
  Report Type: Spontaneous
  Country: FR (occurrence: FR)
  Receive Date: 20140404
  Receipt Date: 20140404
  Transmission Date: 20141212
  Serious: Yes (Hospitalization)
  Sender: FDA-Public Use
  Company Number: PHHY2014FR037989

PATIENT
  Age: 53 Year
  Sex: Female

DRUGS (3)
  1. PARACETAMOL+CAFFEINE SANDOZ [Suspect]
     Indication: PRODUCT USED FOR UNKNOWN INDICATION
     Dosage: 12.5 G, ONCE/SINGLE
     Route: 048
     Dates: start: 20110607, end: 20110607
  2. TOPLEXIL [Suspect]
     Indication: PRODUCT USED FOR UNKNOWN INDICATION
     Dosage: 49.5 MG, ONCE/SINGLE
     Route: 048
     Dates: start: 20110607, end: 20110607
  3. RISPERDAL [Suspect]
     Indication: PRODUCT USED FOR UNKNOWN INDICATION
     Dosage: 28 DF, ONCE/SINGLE
     Route: 048
     Dates: start: 20110607, end: 20110607

REACTIONS (1)
  - Poisoning [Recovered/Resolved]
